FAERS Safety Report 8007058-1 (Version None)
Quarter: 2011Q4

REPORT INFORMATION
  Report Type: 
  Country: None (occurrence: None)
  Receive Date: 20111215
  Receipt Date: 20111212
  Transmission Date: 20120403
  Serious: Yes (Hospitalization)
  Sender: FDA-Public Use
  Company Number: 2011029917

PATIENT
  Age: 61 Year
  Sex: Female

DRUGS (13)
  1. LEVOTHYROXINE SODIUM [Concomitant]
  2. FENISTIL (DIMETINDENE MALEATE) [Concomitant]
  3. ALLOPURINOL [Concomitant]
  4. AMPHO-MORONAL (AMPHIOTERICIN B) [Concomitant]
  5. PRIVIGEN [Suspect]
     Indication: CHRONIC LYMPHOCYTIC LEUKAEMIA
     Dosage: 10 G QD, INFUSION RATE: 0.25 TO 1.33ML/MIN., INTRAVENOUS
     Route: 042
     Dates: start: 20110511, end: 20110511
  6. RITUXAN [Concomitant]
  7. VERAPAMIL [Concomitant]
  8. CYCLOPHOSPHAMIDE [Concomitant]
  9. LORZAAR PLUS (HYZAAR) [Concomitant]
  10. MOVICOL (MOVICOL) [Concomitant]
  11. FLUDARA [Concomitant]
  12. MCP (METOCLOPRAMIDE HYDROCHLORIDE) [Concomitant]
  13. KALINOR (POTASSIUM CHLORIDE) [Concomitant]

REACTIONS (2)
  - C-REACTIVE PROTEIN INCREASED [None]
  - PYREXIA [None]
